FAERS Safety Report 23966954 (Version 1)
Quarter: 2024Q2

REPORT INFORMATION
  Report Type: Spontaneous
  Country: GB (occurrence: GB)
  Receive Date: 20240612
  Receipt Date: 20240612
  Transmission Date: 20240716
  Serious: Yes (Hospitalization, Other)
  Sender: FDA-Public Use
  Company Number: None

PATIENT
  Age: 36 Year
  Sex: Female

DRUGS (27)
  1. VALGANCICLOVIR [Suspect]
     Active Substance: VALGANCICLOVIR
     Indication: Cytomegalovirus viraemia
     Dosage: ON DAY 14
  2. GANCICLOVIR [Suspect]
     Active Substance: GANCICLOVIR
     Indication: Pneumonia cytomegaloviral
     Route: 042
  3. ETOPOSIDE [Suspect]
     Active Substance: ETOPOSIDE
     Indication: Haemophagocytic lymphohistiocytosis
  4. DAPSONE [Suspect]
     Active Substance: DAPSONE
     Indication: Antifungal prophylaxis
  5. COTRIMOXAZOLE [Suspect]
     Active Substance: SULFAMETHOXAZOLE\TRIMETHOPRIM
     Indication: Antifungal prophylaxis
  6. ETHAMBUTOL [Concomitant]
     Active Substance: ETHAMBUTOL HYDROCHLORIDE
  7. AZITHROMYCIN [Concomitant]
     Active Substance: AZITHROMYCIN
  8. DEXAMETHASONE [Concomitant]
     Active Substance: DEXAMETHASONE
     Dosage: 1.5 MG/KG DEXAMETHASONE ON DAY 14
  9. AMPHOTERICIN B [Concomitant]
     Active Substance: AMPHOTERICIN B
     Indication: Antifungal treatment
  10. BIKTARVY [Concomitant]
     Active Substance: BICTEGRAVIR SODIUM\EMTRICITABINE\TENOFOVIR ALAFENAMIDE FUMARATE
     Indication: Hepatitis B reactivation
     Dosage: ON DAY 18
  11. BIKTARVY [Concomitant]
     Active Substance: BICTEGRAVIR SODIUM\EMTRICITABINE\TENOFOVIR ALAFENAMIDE FUMARATE
     Indication: Antiretroviral therapy
     Dosage: ON DAY 18
  12. ANIDULAFUNGIN [Concomitant]
     Active Substance: ANIDULAFUNGIN
     Indication: Bronchopulmonary aspergillosis
  13. MEROPENEM [Concomitant]
     Active Substance: MEROPENEM
     Indication: Evidence based treatment
  14. DOLUTEGRAVIR [Concomitant]
     Active Substance: DOLUTEGRAVIR
     Indication: Antiretroviral therapy
  15. ANAKINRA [Concomitant]
     Active Substance: ANAKINRA
     Indication: Haemophagocytic lymphohistiocytosis
  16. ANAKINRA [Concomitant]
     Active Substance: ANAKINRA
     Indication: Haemophagocytic lymphohistiocytosis
     Dosage: INCREASED DOSE
  17. ANAKINRA [Concomitant]
     Active Substance: ANAKINRA
     Dosage: INCREASED DOSE
  18. FLUCONAZOLE [Concomitant]
     Active Substance: FLUCONAZOLE
     Indication: Hepatic function abnormal
  19. FOSCARNET [Concomitant]
     Active Substance: FOSCARNET
     Indication: Cytomegalovirus viraemia
  20. PROBENECID [Concomitant]
     Active Substance: PROBENECID
     Indication: Cytomegalovirus viraemia
  21. VANCOMYCIN [Concomitant]
     Active Substance: VANCOMYCIN
  22. PIPERACILLIN AND TAZOBACTAM [Concomitant]
     Active Substance: PIPERACILLIN SODIUM\TAZOBACTAM SODIUM
     Indication: Evidence based treatment
  23. DAPTOMYCIN [Concomitant]
     Active Substance: DAPTOMYCIN
  24. Tenofovir disoproxil fumarate, emtricitabine [Concomitant]
     Indication: Antiretroviral therapy
  25. CIDOFOVIR [Concomitant]
     Active Substance: CIDOFOVIR
     Indication: Cytomegalovirus viraemia
  26. RIFAMPIN [Concomitant]
     Active Substance: RIFAMPIN
  27. PREDNISOLONE [Concomitant]
     Active Substance: PREDNISOLONE
     Dosage: DAILY DOSE: 60 MILLIGRAM

REACTIONS (16)
  - Pancytopenia [Recovering/Resolving]
  - Febrile neutropenia [Unknown]
  - Abiotrophia defectiva endocarditis [Unknown]
  - Staphylococcal infection [Unknown]
  - Renal impairment [Unknown]
  - Mycobacterium avium complex infection [Unknown]
  - Blood beta-D-glucan increased [Unknown]
  - Eosinophilic pustular folliculitis [Unknown]
  - Lymphoma [Unknown]
  - Influenza [Unknown]
  - Acute kidney injury [Unknown]
  - Parvovirus infection [Recovered/Resolved]
  - Aspergillus infection [Unknown]
  - Oral candidiasis [Unknown]
  - Off label use [Recovered/Resolved]
  - Off label use [Unknown]
